FAERS Safety Report 23134761 (Version 2)
Quarter: 2023Q4

REPORT INFORMATION
  Report Type: Spontaneous
  Country: US (occurrence: US)
  Receive Date: 20231101
  Receipt Date: 20231107
  Transmission Date: 20240109
  Serious: No
  Sender: FDA-Public Use
  Company Number: US-OPELLA-2023OHG010392

PATIENT
  Sex: Female

DRUGS (2)
  1. ASPERCREME WITH LIDOCAINE NO-MESS APPLICATOR [Suspect]
     Active Substance: LIDOCAINE HYDROCHLORIDE
     Indication: Spinal operation
     Dosage: 2 G/44 ML
     Route: 061
  2. ASPERCREME WITH LIDOCAINE NO-MESS APPLICATOR [Suspect]
     Active Substance: LIDOCAINE HYDROCHLORIDE
     Indication: Neck surgery

REACTIONS (3)
  - Drug ineffective [Unknown]
  - No adverse event [Unknown]
  - Product physical consistency issue [Unknown]
